FAERS Safety Report 5320325-5 (Version None)
Quarter: 2007Q1

REPORT INFORMATION
  Report Type: 
  Country: None (occurrence: None)
  Receive Date: 20070213
  Receipt Date: 20061025
  Transmission Date: 20070707
  Serious: Yes (Other)
  Sender: FDA-Public Use
  Company Number: ALK_0049_2006

PATIENT
  Age: 22 Year
  Sex: Female
  Weight: 60.3284 kg

DRUGS (4)
  1. VIVITROL [Suspect]
     Indication: ALCOHOLISM
     Dosage: 380 MG QM IM
     Route: 030
     Dates: start: 20060825
  2. LUNESTA [Concomitant]
  3. PROVIGIL [Concomitant]
  4. LEXAPRO [Concomitant]

REACTIONS (6)
  - ABORTION SPONTANEOUS [None]
  - DRUG EXPOSURE DURING PREGNANCY [None]
  - FATIGUE [None]
  - INJECTION SITE MASS [None]
  - UTERINE SPASM [None]
  - WEIGHT GAIN POOR [None]
